FAERS Safety Report 11680416 (Version 2)
Quarter: 2015Q4

REPORT INFORMATION
  Report Type: Spontaneous
  Country: US (occurrence: US)
  Receive Date: 20151027
  Receipt Date: 20151104
  Transmission Date: 20160304
  Serious: No
  Sender: FDA-Public Use
  Company Number: US-ELI_LILLY_AND_COMPANY-US201009002548

PATIENT
  Sex: Female

DRUGS (2)
  1. FORTEO [Suspect]
     Active Substance: TERIPARATIDE
     Indication: OSTEOPOROSIS
     Dosage: UNK, UNKNOWN
  2. FORTEO [Suspect]
     Active Substance: TERIPARATIDE
     Dosage: UNK, UNKNOWN

REACTIONS (11)
  - Skin abrasion [Unknown]
  - Laceration [Unknown]
  - Localised infection [Unknown]
  - Road traffic accident [Unknown]
  - Injection site pain [Unknown]
  - Sinus disorder [Unknown]
  - Post-traumatic neck syndrome [Unknown]
  - Haemorrhage [Unknown]
  - Injection site erythema [Unknown]
  - Injection site bruising [Unknown]
  - Contusion [Unknown]
